FAERS Safety Report 16666786 (Version 4)
Quarter: 2019Q3

REPORT INFORMATION
  Report Type: Spontaneous
  Country: PE (occurrence: PE)
  Receive Date: 20190805
  Receipt Date: 20190816
  Transmission Date: 20191004
  Serious: Yes (Death, Hospitalization, Other)
  Sender: FDA-Public Use
  Company Number: PE-B.I. PHARMACEUTICALS,INC./RIDGEFIELD-2019-BI-031963

PATIENT
  Age: 73 Year
  Sex: Male
  Weight: 80 kg

DRUGS (3)
  1. PRADAXA [Suspect]
     Active Substance: DABIGATRAN ETEXILATE MESYLATE
     Route: 048
     Dates: start: 20190729, end: 20190729
  2. PRADAXA [Suspect]
     Active Substance: DABIGATRAN ETEXILATE MESYLATE
     Indication: ATRIAL FIBRILLATION
     Route: 048
     Dates: end: 20190724
  3. PRADAXA [Suspect]
     Active Substance: DABIGATRAN ETEXILATE MESYLATE
     Route: 048
     Dates: start: 20190727, end: 20190728

REACTIONS (13)
  - Sepsis [Unknown]
  - Hypotension [Not Recovered/Not Resolved]
  - Acute kidney injury [Unknown]
  - Peritonitis [Unknown]
  - Loss of consciousness [Unknown]
  - Gastrointestinal necrosis [Unknown]
  - Thrombosis mesenteric vessel [Unknown]
  - Coronary artery embolism [Unknown]
  - Abdominal distension [Unknown]
  - Treatment failure [Unknown]
  - Sensory disturbance [Recovered/Resolved]
  - Septic shock [Fatal]
  - Intestinal perforation [Recovering/Resolving]

NARRATIVE: CASE EVENT DATE: 20190724
